FAERS Safety Report 25277585 (Version 1)
Quarter: 2025Q2

REPORT INFORMATION
  Report Type: Spontaneous
  Country: US (occurrence: None)
  Receive Date: 20250506
  Receipt Date: 20250506
  Transmission Date: 20250717
  Serious: Yes (Hospitalization)
  Sender: FDA-CTU
  Company Number: None

PATIENT
  Age: 29 Year
  Sex: Female

DRUGS (1)
  1. STELARA [Suspect]
     Active Substance: USTEKINUMAB
     Indication: Crohn^s disease
     Dosage: FREQUENCY : MONTHLY;?
     Route: 058

REACTIONS (10)
  - Drug ineffective [None]
  - Norovirus infection [None]
  - Crohn^s disease [None]
  - Infection [None]
  - Influenza [None]
  - Infection [None]
  - Clostridium difficile infection [None]
  - Bacteraemia [None]
  - Fistula [None]
  - Abscess [None]
